FAERS Safety Report 9378183 (Version 3)
Quarter: 2013Q3

REPORT INFORMATION
  Report Type: Spontaneous
  Country: JP (occurrence: JP)
  Receive Date: 20130701
  Receipt Date: 20130731
  Transmission Date: 20140515
  Serious: Yes (Hospitalization)
  Sender: FDA-Public Use
  Company Number: JP-GLAXOSMITHKLINE-B0903974A

PATIENT
  Age: 25 Year
  Sex: Female

DRUGS (6)
  1. LAMICTAL [Suspect]
     Indication: BIPOLAR DISORDER
     Dosage: 25MG PER DAY
     Route: 048
     Dates: start: 20130430, end: 20130513
  2. LAMICTAL [Suspect]
     Indication: BIPOLAR DISORDER
     Dosage: 50MG PER DAY
     Route: 048
     Dates: start: 20130514, end: 20130527
  3. LAMICTAL [Suspect]
     Indication: BIPOLAR DISORDER
     Dosage: 100MG PER DAY
     Route: 048
     Dates: start: 20130528, end: 20130606
  4. ABILIFY [Concomitant]
     Indication: BIPOLAR DISORDER
     Dosage: 6MG PER DAY
     Route: 048
     Dates: start: 20130302
  5. ABILIFY [Concomitant]
     Indication: BIPOLAR DISORDER
     Dosage: 3MG PER DAY
     Route: 048
     Dates: start: 20130406
  6. DEPROMEL [Concomitant]
     Indication: BIPOLAR DISORDER
     Dosage: 25MG TWICE PER DAY
     Route: 048
     Dates: start: 20130406

REACTIONS (14)
  - Renal failure acute [Unknown]
  - Pruritus [Recovered/Resolved]
  - Eczema [Unknown]
  - Lip swelling [Recovered/Resolved]
  - Erythema [Unknown]
  - Erythema [Unknown]
  - Pyrexia [Recovered/Resolved]
  - Malaise [Unknown]
  - Rash [Recovered/Resolved]
  - Rash [Unknown]
  - Insomnia [Unknown]
  - Cheilitis [Unknown]
  - Feeling hot [Unknown]
  - Irritability [Unknown]
